FAERS Safety Report 16088896 (Version 1)
Quarter: 2019Q1

REPORT INFORMATION
  Report Type: Spontaneous
  Country: CA (occurrence: CA)
  Receive Date: 20190319
  Receipt Date: 20190319
  Transmission Date: 20190418
  Serious: Yes (Death, Hospitalization, Other)
  Sender: FDA-Public Use
  Company Number: PHHY2019CA060093

PATIENT
  Age: 58 Year
  Sex: Female

DRUGS (16)
  1. LACTULOSE. [Concomitant]
     Active Substance: LACTULOSE
     Indication: PRODUCT USED FOR UNKNOWN INDICATION
     Dosage: 30 MG, QID
     Route: 065
  2. MORPHINE [Concomitant]
     Active Substance: MORPHINE
     Indication: FLUID RETENTION
  3. MORPHINE [Concomitant]
     Active Substance: MORPHINE
     Indication: PAIN
     Dosage: 0.5 OT, Q2H
     Route: 048
  4. MORPHINE [Concomitant]
     Active Substance: MORPHINE
     Indication: FLUID RETENTION
     Dosage: 2.5 MG, QID
     Route: 048
  5. MORPHINE [Concomitant]
     Active Substance: MORPHINE
     Indication: ABDOMINAL PAIN
  6. MORPHINE [Concomitant]
     Active Substance: MORPHINE
     Indication: PAIN
     Dosage: 5 MG, UNK
     Route: 048
  7. MORPHINE [Concomitant]
     Active Substance: MORPHINE
     Indication: ABDOMINAL PAIN
  8. SANDOSTATIN LAR DEPOT [Suspect]
     Active Substance: OCTREOTIDE ACETATE
     Indication: PANCREATIC NEUROENDOCRINE TUMOUR METASTATIC
     Dosage: 20 MG, QMO
     Route: 030
  9. ZOPICLONE [Suspect]
     Active Substance: ZOPICLONE
     Indication: PRODUCT USED FOR UNKNOWN INDICATION
     Route: 065
  10. DOMPERIDONE [Concomitant]
     Active Substance: DOMPERIDONE
     Indication: PRODUCT USED FOR UNKNOWN INDICATION
     Dosage: 10 MG, TID
     Route: 048
  11. INSULIN LISPRO PROTAMINE SUSPENSION [Concomitant]
     Indication: PRODUCT USED FOR UNKNOWN INDICATION
     Dosage: 33.0 DOSAGE FORM
     Route: 065
  12. MORPHINE [Concomitant]
     Active Substance: MORPHINE
     Indication: MUSCULOSKELETAL PAIN
     Dosage: 0.5 OT, Q4H
     Route: 048
  13. MORPHINE [Concomitant]
     Active Substance: MORPHINE
     Indication: MUSCULOSKELETAL PAIN
  14. AFINITOR [Suspect]
     Active Substance: EVEROLIMUS
     Indication: PANCREATIC NEUROENDOCRINE TUMOUR METASTATIC
     Dosage: 10 MG, QD
     Route: 048
  15. MACROGOL [Concomitant]
     Active Substance: POLYETHYLENE GLYCOLS
     Indication: PRODUCT USED FOR UNKNOWN INDICATION
     Dosage: 17 G, QD
     Route: 065
  16. RIFAXIMIN. [Concomitant]
     Active Substance: RIFAXIMIN
     Indication: PRODUCT USED FOR UNKNOWN INDICATION
     Dosage: 550 MG, BID
     Route: 065

REACTIONS (69)
  - Blood glucose decreased [Fatal]
  - Blood urine present [Fatal]
  - Confusional state [Fatal]
  - Disorientation [Fatal]
  - Dysstasia [Fatal]
  - Fall [Fatal]
  - Hypothyroidism [Fatal]
  - Weight decreased [Fatal]
  - Blood sodium decreased [Fatal]
  - Death [Fatal]
  - Dehydration [Fatal]
  - Epigastric discomfort [Fatal]
  - Glucose urine present [Fatal]
  - Hepatic enzyme increased [Fatal]
  - Injection site pain [Fatal]
  - Malaise [Fatal]
  - Rotator cuff syndrome [Fatal]
  - Blood glucose increased [Fatal]
  - Blood pressure decreased [Fatal]
  - Constipation [Fatal]
  - Electrolyte imbalance [Fatal]
  - Hepatomegaly [Fatal]
  - Incoherent [Fatal]
  - Polyuria [Fatal]
  - Rash macular [Fatal]
  - Dysuria [Fatal]
  - Eye injury [Fatal]
  - Malignant neoplasm progression [Fatal]
  - Abdominal rigidity [Fatal]
  - Abdominal tenderness [Fatal]
  - Anxiety [Fatal]
  - Feeling abnormal [Fatal]
  - Flatulence [Fatal]
  - Gastrointestinal sounds abnormal [Fatal]
  - Needle issue [Fatal]
  - Pneumonia bacterial [Fatal]
  - Pyrexia [Fatal]
  - Swelling [Fatal]
  - Urinary tract infection [Fatal]
  - Abdominal pain [Fatal]
  - Bronchitis [Fatal]
  - Dysarthria [Fatal]
  - Gait disturbance [Fatal]
  - Gastrooesophageal reflux disease [Fatal]
  - Musculoskeletal pain [Fatal]
  - Pollakiuria [Fatal]
  - Rhinorrhoea [Fatal]
  - Abdominal distension [Fatal]
  - Arthralgia [Fatal]
  - Breath odour [Fatal]
  - Delirium [Fatal]
  - Diarrhoea [Fatal]
  - Functional gastrointestinal disorder [Fatal]
  - Infection [Fatal]
  - Influenza [Fatal]
  - Injection site erythema [Fatal]
  - Nasopharyngitis [Fatal]
  - Type 1 diabetes mellitus [Fatal]
  - Abdominal discomfort [Fatal]
  - Alopecia [Fatal]
  - Blood phosphorus decreased [Fatal]
  - Blood pressure increased [Fatal]
  - Fluid retention [Fatal]
  - Hepatic encephalopathy [Fatal]
  - Injection site reaction [Fatal]
  - Memory impairment [Fatal]
  - Sinus congestion [Fatal]
  - Tenderness [Fatal]
  - Urinary incontinence [Fatal]
